FAERS Safety Report 7554426-8 (Version None)
Quarter: 2011Q2

REPORT INFORMATION
  Report Type: 
  Country: None (occurrence: None)
  Receive Date: 20110617
  Receipt Date: 20110610
  Transmission Date: 20111010
  Serious: Yes (Hospitalization)
  Sender: FDA-Public Use
  Company Number: A0869053A

PATIENT
  Age: 78 Year
  Sex: Female
  Weight: 65.9 kg

DRUGS (6)
  1. SYNTHROID [Concomitant]
  2. ZOCOR [Concomitant]
  3. HYDROCHLOROTHIAZIDE [Concomitant]
  4. GLUCOTROL [Concomitant]
  5. AVANDIA [Suspect]
     Indication: DIABETES MELLITUS
     Dosage: 4MG PER DAY
     Route: 048
  6. AMIODARONE HCL [Concomitant]

REACTIONS (16)
  - MYOCARDIAL INFARCTION [None]
  - CARDIAC FAILURE CONGESTIVE [None]
  - ACUTE CORONARY SYNDROME [None]
  - CARDIAC FAILURE [None]
  - DIZZINESS [None]
  - AORTIC VALVE SCLEROSIS [None]
  - CORONARY ARTERY DISEASE [None]
  - LARYNGEAL INJURY [None]
  - BALANCE DISORDER [None]
  - MITRAL VALVE CALCIFICATION [None]
  - PULMONARY CONGESTION [None]
  - DEHYDRATION [None]
  - HYPERGLYCAEMIA [None]
  - CONCUSSION [None]
  - AORTIC STENOSIS [None]
  - AORTIC VALVE INCOMPETENCE [None]
